FAERS Safety Report 8487253-8 (Version None)
Quarter: 2012Q3

REPORT INFORMATION
  Report Type: 
  Country: None (occurrence: None)
  Receive Date: 20120705
  Receipt Date: 20120628
  Transmission Date: 20120928
  Serious: No
  Sender: FDA-Public Use
  Company Number: US-BIOGENIDEC-2010BI013406

PATIENT
  Sex: Female

DRUGS (1)
  1. TYSABRI [Suspect]
     Indication: MULTIPLE SCLEROSIS
     Route: 042
     Dates: start: 20080925

REACTIONS (21)
  - BACK PAIN [None]
  - WHITE BLOOD CELL COUNT INCREASED [None]
  - BALANCE DISORDER [None]
  - MOTION SICKNESS [None]
  - LIGAMENT SPRAIN [None]
  - SOMNOLENCE [None]
  - PAIN [None]
  - ARTHRALGIA [None]
  - NAUSEA [None]
  - DECREASED APPETITE [None]
  - PARAESTHESIA [None]
  - TEMPERATURE INTOLERANCE [None]
  - NEUROGENIC BLADDER [None]
  - SINUSITIS [None]
  - MUSCLE SPASTICITY [None]
  - TREMOR [None]
  - FALL [None]
  - MASS [None]
  - DYSGRAPHIA [None]
  - FATIGUE [None]
  - PAIN IN EXTREMITY [None]
